FAERS Safety Report 22366530 (Version 2)
Quarter: 2023Q2

REPORT INFORMATION
  Report Type: Report from Study
  Country: MX (occurrence: MX)
  Receive Date: 20230525
  Receipt Date: 20230621
  Transmission Date: 20230722
  Serious: Yes (Other)
  Sender: FDA-Public Use
  Company Number: MX-BIOGEN-2023BI01206859

PATIENT
  Age: 30 Year
  Sex: Female
  Weight: 62 kg

DRUGS (1)
  1. TYSABRI [Suspect]
     Active Substance: NATALIZUMAB
     Indication: Relapsing-remitting multiple sclerosis
     Route: 050
     Dates: start: 20170330, end: 20221019

REACTIONS (1)
  - Invasive ductal breast carcinoma [Not Recovered/Not Resolved]

NARRATIVE: CASE EVENT DATE: 20220713
